FAERS Safety Report 19088700 (Version 1)
Quarter: 2021Q2

REPORT INFORMATION
  Report Type: Spontaneous
  Country: US (occurrence: US)
  Receive Date: 20210402
  Receipt Date: 20210402
  Transmission Date: 20210717
  Serious: No
  Sender: FDA-Public Use
  Company Number: US-SA-2021SA106564

PATIENT
  Age: 70 Year
  Sex: Female

DRUGS (5)
  1. B?COMPLEX [VITAMIN B COMPLEX] [Concomitant]
  2. AUBAGIO [Suspect]
     Active Substance: TERIFLUNOMIDE
     Indication: MULTIPLE SCLEROSIS
     Dosage: 14 MG
     Route: 048
     Dates: start: 2020
  3. HYDROCORTISONE. [Concomitant]
     Active Substance: HYDROCORTISONE
  4. B1 [Concomitant]
  5. MAGNESIUM [Concomitant]
     Active Substance: MAGNESIUM

REACTIONS (3)
  - Paraesthesia [Not Recovered/Not Resolved]
  - Pruritus [Not Recovered/Not Resolved]
  - Alopecia [Not Recovered/Not Resolved]

NARRATIVE: CASE EVENT DATE: 2020
